FAERS Safety Report 21798080 (Version 2)
Quarter: 2023Q1

REPORT INFORMATION
  Report Type: Spontaneous
  Country: JP (occurrence: JP)
  Receive Date: 20221230
  Receipt Date: 20230207
  Transmission Date: 20230417
  Serious: No
  Sender: FDA-Public Use
  Company Number: JP-PFIZER INC-PV202200131081

PATIENT
  Age: 5 Year

DRUGS (1)
  1. GENOTROPIN [Suspect]
     Active Substance: SOMATROPIN
     Dosage: 0.4 MG
     Route: 058

REACTIONS (3)
  - Injection site pain [Unknown]
  - Injection site vesicles [Unknown]
  - Wrong technique in device usage process [Unknown]
